FAERS Safety Report 22347862 (Version 1)
Quarter: 2023Q2

REPORT INFORMATION
  Report Type: Report from Study
  Country: US (occurrence: US)
  Receive Date: 20230522
  Receipt Date: 20230522
  Transmission Date: 20230721
  Serious: Yes (Hospitalization, Other)
  Sender: FDA-Public Use
  Company Number: US-ABBVIE-4280307

PATIENT
  Age: 73 Year
  Sex: Male

DRUGS (5)
  1. HUMIRA [Suspect]
     Active Substance: ADALIMUMAB
     Indication: Rheumatoid arthritis
     Dosage: STRENGTH: 40 MILLIGRAM
     Route: 058
     Dates: start: 20190110
  2. HUMIRA [Suspect]
     Active Substance: ADALIMUMAB
     Dosage: STRENGTH: 40 MILLIGRAM
     Route: 058
     Dates: start: 20190710, end: 202211
  3. HUMIRA [Suspect]
     Active Substance: ADALIMUMAB
     Route: 058
  4. HUMIRA [Suspect]
     Active Substance: ADALIMUMAB
     Dosage: STRENGTH: 40 MILLIGRAM
     Route: 058
     Dates: start: 202212
  5. HYDROCODONE [Concomitant]
     Active Substance: HYDROCODONE
     Indication: Pain

REACTIONS (5)
  - Post procedural complication [Unknown]
  - Knee arthroplasty [Recovering/Resolving]
  - Arthritis [Unknown]
  - Arthropathy [Unknown]
  - Knee arthroplasty [Unknown]

NARRATIVE: CASE EVENT DATE: 20221101
